FAERS Safety Report 6940082-6 (Version None)
Quarter: 2010Q3

REPORT INFORMATION
  Report Type: 
  Country: None (occurrence: None)
  Receive Date: 20100825
  Receipt Date: 20100812
  Transmission Date: 20110219
  Serious: Yes (Hospitalization)
  Sender: FDA-Public Use
  Company Number: CA-US-EMD SERONO, INC.-230030J10CAN

PATIENT
  Sex: Male

DRUGS (4)
  1. REBIF [Suspect]
     Indication: RELAPSING-REMITTING MULTIPLE SCLEROSIS
     Route: 058
     Dates: start: 20060215
  2. ASPIRIN [Concomitant]
  3. SENOSIBRATE [Concomitant]
     Indication: HYPERCHOLESTEROLAEMIA
  4. DRUG FOR HIGH BLOOD PRESSURE [Concomitant]
     Indication: HYPERTENSION

REACTIONS (4)
  - ARTERIOSCLEROSIS [None]
  - INJECTION SITE ERYTHEMA [None]
  - INJECTION SITE PAIN [None]
  - INJECTION SITE SWELLING [None]
